FAERS Safety Report 21533985 (Version 1)
Quarter: 2022Q4

REPORT INFORMATION
  Report Type: Spontaneous
  Country: US (occurrence: US)
  Receive Date: 20221101
  Receipt Date: 20221101
  Transmission Date: 20230112
  Serious: No
  Sender: FDA-Public Use
  Company Number: US-BAYER-2022A151903

PATIENT
  Age: 74 Year
  Sex: Female

DRUGS (1)
  1. ALEVE [Suspect]
     Active Substance: NAPROXEN SODIUM
     Indication: Myalgia
     Dosage: 2 FOR THE FIRST DOSE AND 1 TABLET FOR THE 2ND DOSE
     Route: 048
     Dates: start: 20220922

REACTIONS (1)
  - Drug ineffective [Unknown]
